FAERS Safety Report 8596124-8 (Version None)
Quarter: 2012Q3

REPORT INFORMATION
  Report Type: 
  Country: None (occurrence: None)
  Receive Date: 20120815
  Receipt Date: 20120809
  Transmission Date: 20120928
  Serious: Yes (Hospitalization)
  Sender: FDA-Public Use
  Company Number: US-GLAXOSMITHKLINE-A0985755A

PATIENT
  Age: 61 Year
  Weight: 89.5 kg

DRUGS (1)
  1. OFATUMUMAB [Suspect]
     Indication: CHRONIC LYMPHOCYTIC LEUKAEMIA
     Dosage: 2000MG CYCLIC
     Route: 042
     Dates: start: 20120621

REACTIONS (3)
  - DYSPNOEA [None]
  - HYPERTENSIVE CRISIS [None]
  - ACUTE PULMONARY OEDEMA [None]
